FAERS Safety Report 21936222 (Version 3)
Quarter: 2023Q2

REPORT INFORMATION
  Report Type: Report from Study
  Country: CA (occurrence: CA)
  Receive Date: 20230201
  Receipt Date: 20230526
  Transmission Date: 20230722
  Serious: Yes (Hospitalization)
  Sender: FDA-Public Use
  Company Number: CA-002147023-NVSC2023CA017750

PATIENT
  Age: 47 Year
  Sex: Male

DRUGS (2)
  1. HYRIMOZ [Suspect]
     Active Substance: ADALIMUMAB-ADAZ
     Indication: Hidradenitis
     Dosage: 40 MG
     Route: 058
     Dates: start: 20221230
  2. HYRIMOZ [Suspect]
     Active Substance: ADALIMUMAB-ADAZ
     Dosage: 80 MG, QW (PRE FILLED PEN)
     Route: 058

REACTIONS (4)
  - Decreased immune responsiveness [Unknown]
  - Pneumonia [Unknown]
  - Product distribution issue [Unknown]
  - Off label use [Unknown]
